FAERS Safety Report 8454008 (Version 2)
Quarter: 2012Q4

REPORT INFORMATION
  Report Type: 
  Country: US (occurrence: US)
  Receive Date: 20120312
  Receipt Date: 20120903
  Transmission Date: 20130627
  Serious: Yes (Hospitalization)
  Sender: FDA-Public Use
  Company Number: US-BAYER-2012-022382

PATIENT
  Age: 37 Year
  Sex: Female
  Weight: 58.96 kg

DRUGS (6)
  1. YASMIN [Suspect]
     Indication: CONTRACEPTION
     Dosage: UNK
     Dates: start: 200206, end: 20061130
  2. YASMIN [Suspect]
     Indication: MENSTRUAL CYCLE MANAGEMENT
     Dosage: UNK
     Dates: start: 20080208, end: 200806
  3. OCELLA [Suspect]
     Indication: CONTRACEPTION
     Dosage: UNK
     Dates: start: 20080727, end: 20081027
  4. OCELLA [Suspect]
     Indication: MENSTRUAL CYCLE MANAGEMENT
  5. SYNTHROID [Concomitant]
     Indication: THYROID HORMONE REPLACEMENT THERAPY
     Dosage: 25 ?g, daily
     Route: 048
     Dates: start: 200508
  6. LEVAQUIN [Concomitant]
     Dosage: 500 mg, UNK
     Route: 048
     Dates: start: 20080701

REACTIONS (8)
  - Deep vein thrombosis [None]
  - Pain [None]
  - Injury [None]
  - Anxiety [None]
  - Anhedonia [None]
  - Oedema peripheral [None]
  - Erythema [None]
  - Mental disorder [None]
